FAERS Safety Report 4352371-2 (Version None)
Quarter: 2004Q2

REPORT INFORMATION
  Report Type: 
  Country: None (occurrence: None)
  Receive Date: 20040504
  Receipt Date: 20020415
  Transmission Date: 20050107
  Serious: Yes (Death, Life-Threatening, Hospitalization, Other)
  Sender: FDA-Public Use
  Company Number: US-BRISTOL-MYERS SQUIBB COMPANY-11819752

PATIENT
  Age: 24 Year
  Sex: Male

DRUGS (13)
  1. BMS224818 [Suspect]
     Dosage: RE-ALLOCATION DATE: 09-JAN-2002
     Route: 042
     Dates: start: 20010724, end: 20020402
  2. PREDNISONE [Suspect]
     Route: 048
     Dates: start: 20010726, end: 20020415
  3. CELLCEPT [Suspect]
     Route: 048
     Dates: start: 20010724, end: 20020412
  4. FORTECORTIN [Suspect]
     Dates: start: 20020401, end: 20021006
  5. RAPAMUNE [Suspect]
     Dates: start: 20020401, end: 20021006
  6. DOXAZOSIN MESYLATE [Concomitant]
     Route: 048
  7. LISINOPRIL [Concomitant]
     Route: 048
  8. EPILAN [Concomitant]
  9. GABAPENTIN [Concomitant]
     Dates: end: 20020920
  10. LANSOPRAZOLE [Concomitant]
     Dates: end: 20021006
  11. EPOETIN ALFA [Concomitant]
  12. FLUCONAZOLE [Concomitant]
  13. CIPROXIN [Concomitant]

REACTIONS (5)
  - CARDIO-RESPIRATORY ARREST [None]
  - DEATH [None]
  - LYMPHOPROLIFERATIVE DISORDER [None]
  - PNEUMOCYSTIS CARINII PNEUMONIA [None]
  - PULMONARY HAEMORRHAGE [None]
